FAERS Safety Report 5119948-8 (Version None)
Quarter: 2006Q3

REPORT INFORMATION
  Report Type: 
  Country: None (occurrence: None)
  Receive Date: 20060928
  Receipt Date: 20060925
  Transmission Date: 20061208
  Serious: Yes (Hospitalization)
  Sender: FDA-Public Use
  Company Number: HQWYE640301AUG06

PATIENT
  Age: 66 Year
  Sex: Male

DRUGS (8)
  1. CORDAREX (AMIODARONE, TABLET) [Suspect]
     Indication: ATRIAL FIBRILLATION
     Dosage: 200 MG 1X PER 1 DAY ORAL; SEE IMAGE
     Route: 048
     Dates: start: 20011116, end: 20011126
  2. CORDAREX (AMIODARONE, TABLET) [Suspect]
     Indication: ATRIAL FIBRILLATION
     Dosage: 200 MG 1X PER 1 DAY ORAL; SEE IMAGE
     Route: 048
     Dates: start: 20011127
  3. RAMIPRIL [Concomitant]
  4. PRAVASTATIN SODIUM [Concomitant]
  5. BELOC-ZOC MITE (METOPROLOL SUCCINATE) [Concomitant]
  6. GODAMED (ACETYLSALICYLIC ACID/AMINOACETIC ACID) [Concomitant]
  7. MARCUMAR [Concomitant]
  8. HCT (HYDROCHLOROTHIAZIDE) [Concomitant]

REACTIONS (2)
  - BLADDER PAPILLOMA [None]
  - TRANSITIONAL CELL CARCINOMA [None]
